FAERS Safety Report 14006776 (Version 3)
Quarter: 2018Q4

REPORT INFORMATION
  Report Type: Spontaneous
  Country: US (occurrence: US)
  Receive Date: 20170925
  Receipt Date: 20181103
  Transmission Date: 20190204
  Serious: Yes (Hospitalization, Other)
  Sender: FDA-Public Use
  Company Number: US-MACLEODS PHARMACEUTICALS US LTD-MAC2017005973

PATIENT

DRUGS (11)
  1. CALCIUM CARBONATE. [Interacting]
     Active Substance: CALCIUM CARBONATE
     Indication: MINERAL SUPPLEMENTATION
     Dosage: 15000 MG, QD
     Route: 048
  2. GLUCOSE [Concomitant]
     Active Substance: DEXTROSE
     Indication: PRODUCT USED FOR UNKNOWN INDICATION
     Dosage: UNK
     Route: 065
  3. CALCIUM ACETATE. [Concomitant]
     Active Substance: CALCIUM ACETATE
     Indication: PROPHYLAXIS
     Dosage: UNK
     Route: 065
  4. PANTOPRAZOLE [Interacting]
     Active Substance: PANTOPRAZOLE
     Indication: GASTROINTESTINAL MOTILITY DISORDER
     Dosage: 40 MILLIGRAM, QD
     Route: 065
  5. DEXTROSE. [Interacting]
     Active Substance: DEXTROSE
     Indication: PRODUCT USED FOR UNKNOWN INDICATION
     Dosage: 2.5 %, UNK
     Route: 065
  6. CALCIUM GLUCONATE. [Concomitant]
     Active Substance: CALCIUM GLUCONATE
     Indication: PROPHYLAXIS
     Dosage: 4-12 G/DAY
     Route: 042
  7. CALCIUM ACETATE. [Concomitant]
     Active Substance: CALCIUM ACETATE
     Dosage: 4,002- 8,004 MG/DAY
     Route: 065
  8. CALCIUM CARBONATE. [Interacting]
     Active Substance: CALCIUM CARBONATE
     Indication: PROPHYLAXIS
     Dosage: 3750 MILLIGRAM, TID, 11250 MG, QD, 3 IN A DAY BETWEEN MEALS 3750 MG, TID
     Route: 048
  9. CALCITRIOL. [Concomitant]
     Active Substance: CALCITRIOL
     Indication: MINERAL SUPPLEMENTATION
  10. PANTOPRAZOLE [Suspect]
     Active Substance: PANTOPRAZOLE
     Indication: GASTROOESOPHAGEAL REFLUX DISEASE
     Dosage: 40 MG, QD ATLEAST DAILY
     Route: 065
  11. CALCITRIOL. [Concomitant]
     Active Substance: CALCITRIOL
     Indication: PROPHYLAXIS
     Dosage: UNK, QD, 2-4 MCG/DAY
     Route: 065

REACTIONS (6)
  - Hypoaesthesia oral [Recovered/Resolved]
  - Treatment noncompliance [Unknown]
  - Paraesthesia [Recovered/Resolved]
  - Asthenia [Recovered/Resolved]
  - Hypocalcaemia [Unknown]
  - Drug interaction [Unknown]
